FAERS Safety Report 9181457 (Version 2)
Quarter: 2013Q2

REPORT INFORMATION
  Report Type: Spontaneous
  Country: FR (occurrence: FR)
  Receive Date: 20130322
  Receipt Date: 20130506
  Transmission Date: 20140414
  Serious: Yes (Other)
  Sender: FDA-Public Use
  Company Number: FR-JNJFOC-20130206494

PATIENT
  Sex: Male

DRUGS (4)
  1. INCIVO [Suspect]
     Indication: HEPATITIS C
     Route: 048
     Dates: start: 20121213
  2. COPEGUS [Suspect]
     Indication: HEPATITIS C
     Dosage: 400MG IN THE MORNING, 800MG IN THE EVENING
     Route: 048
     Dates: start: 20120911
  3. PEGASYS [Suspect]
     Indication: HEPATITIS C
     Dosage: 400MG IN THE MORNING, 800MG IN THE EVENING
     Route: 058
     Dates: start: 20120911
  4. DOLIPRANE [Suspect]
     Indication: PRODUCT USED FOR UNKNOWN INDICATION
     Route: 048
     Dates: start: 201209

REACTIONS (3)
  - Platelet count decreased [Unknown]
  - Pruritus generalised [Not Recovered/Not Resolved]
  - White blood cell count decreased [Unknown]
